FAERS Safety Report 5163495-4 (Version None)
Quarter: 2006Q4

REPORT INFORMATION
  Report Type: 
  Country: None (occurrence: None)
  Receive Date: 20061124
  Receipt Date: 20061113
  Transmission Date: 20070319
  Serious: Yes (Other)
  Sender: FDA-Public Use
  Company Number: 2006137872

PATIENT
  Sex: Male
  Weight: 133.8111 kg

DRUGS (13)
  1. LYRICA [Suspect]
     Indication: NERVE INJURY
     Dosage: 50 MG (50 MG, 1 IN 1 D), ORAL
     Route: 048
     Dates: start: 20060901
  2. COZAAR [Concomitant]
  3. LEVOTHYROXINE SODIUM [Concomitant]
  4. POTASSIUM (POTASSIUM) [Concomitant]
  5. CADUET [Concomitant]
  6. FUROSEMIDE [Concomitant]
  7. HYDROCODONE (HYDROCODONE) [Concomitant]
  8. MULTIVITAMIN [Concomitant]
  9. FISH OIL (FISH OIL) [Concomitant]
  10. VITAMIN C (VITAMIN C) [Concomitant]
  11. FOLIC ACID [Concomitant]
  12. ACETAMINOPHEN [Concomitant]
  13. ALL OTHER THERAPEUTIC PRODUCTS (ALL OTHER THERAPEUTIC PRODUCTS) [Concomitant]

REACTIONS (3)
  - PAIN [None]
  - SOMNOLENCE [None]
  - THROMBOSIS [None]
